FAERS Safety Report 4696171-2 (Version None)
Quarter: 2005Q2

REPORT INFORMATION
  Report Type: 
  Country: None (occurrence: None)
  Receive Date: 20050620
  Receipt Date: 20050610
  Transmission Date: 20051028
  Serious: Yes (Life-Threatening)
  Sender: FDA-Public Use
  Company Number: 2005087560

PATIENT
  Age: 62 Year
  Sex: Female

DRUGS (4)
  1. MEDROL [Suspect]
     Indication: ILL-DEFINED DISORDER
     Dosage: 4 MG (4 MG, 1 IN 1 D), ORAL
     Route: 048
     Dates: start: 19960101
  2. METHOTREXATE [Suspect]
     Indication: ILL-DEFINED DISORDER
     Dosage: 15 MG (15 MG, 1 IN 1 WK), ORAL
     Route: 048
     Dates: start: 20020901
  3. HUMIRA [Suspect]
     Indication: RHEUMATOID ARTHRITIS
     Dosage: 40 (40 MG, 1 IN 1WK), SUBCUTANEOUS
     Route: 058
     Dates: start: 20030603, end: 20050515
  4. DICLOFENAC SODIUM [Concomitant]

REACTIONS (1)
  - MALIGNANT MELANOMA [None]
